FAERS Safety Report 8037638-9 (Version None)
Quarter: 2012Q1

REPORT INFORMATION
  Report Type: 
  Country: None (occurrence: None)
  Receive Date: 20120111
  Receipt Date: 20111230
  Transmission Date: 20120608
  Serious: Yes (Other)
  Sender: FDA-Public Use
  Company Number: FR-UCBSA-029761

PATIENT
  Age: 70 Year
  Sex: Female

DRUGS (9)
  1. FEMARA [Suspect]
     Indication: BREAST CANCER
     Route: 048
     Dates: start: 20060101, end: 20110901
  2. BONIVA [Suspect]
     Indication: OSTEOPOROSIS
     Dosage: 1 UNIT MONTHLY
     Route: 048
     Dates: start: 20070401
  3. INDAPAMIDE [Suspect]
     Indication: HYPERTENSION
     Route: 048
  4. ATORVASTATIN CALCIUM [Suspect]
     Indication: HYPERCHOLESTEROLAEMIA
     Route: 048
     Dates: start: 20080801
  5. PIASCLEDINE [Suspect]
     Indication: OSTEOARTHRITIS
     Route: 048
  6. SPIRIVA [Concomitant]
     Indication: BRONCHOPNEUMOPATHY
     Dates: start: 20101125
  7. XYZAL [Suspect]
     Indication: SEASONAL ALLERGY
     Dosage: 1 UNIT IN SPRING
     Route: 048
  8. VOLTAREN [Suspect]
     Indication: OSTEOARTHRITIS
     Dosage: FOR 5 OR 6 DAYS
     Route: 048
  9. MOVIPREP [Suspect]
     Indication: CONSTIPATION
     Dosage: 1 UNIT DAILY
     Route: 048

REACTIONS (9)
  - CHEST DISCOMFORT [None]
  - ERUCTATION [None]
  - VISUAL PATHWAY DISORDER [None]
  - FALL [None]
  - HYPOTONIA [None]
  - RESPIRATORY DISORDER [None]
  - CHRONIC OBSTRUCTIVE PULMONARY DISEASE [None]
  - HEARING IMPAIRED [None]
  - MALAISE [None]
